FAERS Safety Report 21022151 (Version 1)
Quarter: 2022Q2

REPORT INFORMATION
  Report Type: Spontaneous
  Country: US (occurrence: None)
  Receive Date: 20220628
  Receipt Date: 20220628
  Transmission Date: 20220721
  Serious: No
  Sender: FDA-Public Use
  Company Number: None

PATIENT
  Sex: Female

DRUGS (1)
  1. JAKAFI [Suspect]
     Active Substance: RUXOLITINIB
     Dosage: OTHER FREQUENCY : 1 TAB AM 2 TABS PM;?
     Route: 048

REACTIONS (3)
  - Limb injury [None]
  - Impaired healing [None]
  - Mobility decreased [None]
